FAERS Safety Report 6232349-4 (Version None)
Quarter: 2009Q2

REPORT INFORMATION
  Report Type: 
  Country: None (occurrence: None)
  Receive Date: 20090617
  Receipt Date: 20090609
  Transmission Date: 20091009
  Serious: Yes (Hospitalization)
  Sender: FDA-Public Use
  Company Number: CA-WYE-G03829009

PATIENT
  Sex: Male

DRUGS (2)
  1. TIGECYCLINE [Suspect]
     Indication: ABDOMINAL INFECTION
  2. CIPRO [Concomitant]
     Indication: PNEUMONIA ESCHERICHIA
     Dosage: UNKNOWN

REACTIONS (2)
  - PNEUMONIA [None]
  - PNEUMONIA ESCHERICHIA [None]
